FAERS Safety Report 14067726 (Version 1)
Quarter: 2017Q4

REPORT INFORMATION
  Report Type: Spontaneous
  Country: US (occurrence: None)
  Receive Date: 20171007
  Receipt Date: 20171007
  Transmission Date: 20180321
  Serious: Yes (Hospitalization)
  Sender: FDA-Public Use
  Company Number: None

PATIENT
  Age: 39 Year
  Sex: Female
  Weight: 62 kg

DRUGS (2)
  1. METHOTREXATE. [Suspect]
     Active Substance: METHOTREXATE
     Dates: end: 20170920
  2. ERWINIA ASPARAGINASE [Suspect]
     Active Substance: ASPARAGINASE ERWINIA CHRYSANTHEMI
     Dates: end: 20170927

REACTIONS (8)
  - Fatigue [None]
  - Toxicity to various agents [None]
  - Diplopia [None]
  - Nausea [None]
  - Vomiting [None]
  - Hyperglycaemia [None]
  - Presyncope [None]
  - Headache [None]

NARRATIVE: CASE EVENT DATE: 20170929
